FAERS Safety Report 18480057 (Version 1)
Quarter: 2020Q4

REPORT INFORMATION
  Report Type: Spontaneous
  Country: US (occurrence: US)
  Receive Date: 20201109
  Receipt Date: 20201109
  Transmission Date: 20210114
  Serious: No
  Sender: FDA-Public Use
  Company Number: US-MYLANLABS-2020M1091781

PATIENT
  Sex: Female

DRUGS (2)
  1. METOPROLOL TARTRATE TABLETS USP [Suspect]
     Active Substance: METOPROLOL TARTRATE
     Indication: ATRIAL FIBRILLATION
     Dosage: UNK UNK, 0.5 TABLET BID
     Route: 048
     Dates: start: 202002
  2. DIGOXIN. [Concomitant]
     Active Substance: DIGOXIN
     Dosage: UNK

REACTIONS (3)
  - Hypotension [Recovering/Resolving]
  - Wrong technique in product usage process [Recovering/Resolving]
  - Pruritus [Recovering/Resolving]
